FAERS Safety Report 12361868 (Version 2)
Quarter: 2016Q3

REPORT INFORMATION
  Report Type: Spontaneous
  Country: US (occurrence: US)
  Receive Date: 20160512
  Receipt Date: 20160809
  Transmission Date: 20161109
  Serious: No
  Sender: FDA-Public Use
  Company Number: US-SA-2016SA068926

PATIENT
  Age: 76 Year
  Sex: Female
  Weight: 54.8 kg

DRUGS (7)
  1. AMANTADINE [Concomitant]
     Active Substance: AMANTADINE
     Dosage: DOSE: 100 (UNIT UNKNOWN)
  2. ASA [Concomitant]
     Active Substance: ASPIRIN
     Dosage: DOSE: 81 (UNITS UNKNOWN)
  3. LISINOPRIL. [Concomitant]
     Active Substance: LISINOPRIL
     Dosage: DOSE: 10 (UNIT UNKNOWN)
  4. ATENOLOL. [Concomitant]
     Active Substance: ATENOLOL
     Dosage: DOSE: 25 (UNIT UNKNOWN)
  5. ALIROCUMAB PREFILLED PEN [Suspect]
     Active Substance: ALIROCUMAB
     Indication: HYPERLIPIDAEMIA
     Dates: start: 20160401
  6. PRALUENT [Suspect]
     Active Substance: ALIROCUMAB
     Indication: HYPERLIPIDAEMIA
     Route: 058
     Dates: start: 20160401
  7. ELIQUIS [Concomitant]
     Active Substance: APIXABAN
     Dosage: DOSE: 2.5 (UNITS UNKNOWN)

REACTIONS (2)
  - Injection site pain [Not Recovered/Not Resolved]
  - Device issue [Unknown]

NARRATIVE: CASE EVENT DATE: 20160401
